FAERS Safety Report 5391454-5 (Version None)
Quarter: 2007Q3

REPORT INFORMATION
  Report Type: 
  Country: None (occurrence: None)
  Receive Date: 20070719
  Receipt Date: 20070706
  Transmission Date: 20080115
  Serious: Yes (Hospitalization)
  Sender: FDA-Public Use
  Company Number: CA-ELI_LILLY_AND_COMPANY-CA200706006527

PATIENT
  Age: 13 Year
  Sex: Female
  Weight: 104 kg

DRUGS (8)
  1. STRATTERA [Suspect]
     Indication: ATTENTION DEFICIT/HYPERACTIVITY DISORDER
     Dosage: 60 MG, DAILY (1/D)
     Route: 048
     Dates: start: 20070401, end: 20070601
  2. LAMOTRIGINE [Concomitant]
     Indication: MOOD ALTERED
     Dosage: 50 MG, EACH EVENING
     Route: 048
     Dates: start: 20070514, end: 20070612
  3. LAMOTRIGINE [Concomitant]
     Dosage: 25 MG, EACH MORNING
     Route: 048
     Dates: start: 20070514, end: 20070612
  4. ESCITALOPRAM OXALATE [Concomitant]
     Dosage: 10 MG, DAILY (1/D)
     Dates: start: 20051220
  5. DIVALPROEX SODIUM [Concomitant]
     Dosage: 750 MG, DAILY (1/D)
     Dates: start: 20040803, end: 20070514
  6. MULTI-VITAMIN [Concomitant]
     Dosage: 4 D/F, 2/D
     Dates: start: 20000101, end: 20070601
  7. ACETAMINOPHEN [Concomitant]
     Dosage: 650 MG, EVERY 4 HRS
     Dates: start: 20070609, end: 20070618
  8. IBUPROFEN [Concomitant]
     Dosage: 400 MG, EVERY 4 HRS
     Dates: start: 20070609, end: 20070618

REACTIONS (3)
  - AFFECTIVE DISORDER [None]
  - ATTENTION DEFICIT/HYPERACTIVITY DISORDER [None]
  - DRUG RASH WITH EOSINOPHILIA AND SYSTEMIC SYMPTOMS [None]
